FAERS Safety Report 5082402-6 (Version None)
Quarter: 2006Q3

REPORT INFORMATION
  Report Type: 
  Country: None (occurrence: None)
  Receive Date: 20060817
  Receipt Date: 20060816
  Transmission Date: 20061208
  Serious: Yes (Other)
  Sender: FDA-Public Use
  Company Number: US-GLAXOSMITHKLINE-A0616955A

PATIENT
  Age: 89 Year
  Sex: Female

DRUGS (8)
  1. LAMICTAL [Suspect]
     Indication: CONVULSION
     Dosage: 100MG TWICE PER DAY
     Route: 048
     Dates: start: 20060401
  2. SEROQUEL [Suspect]
     Indication: DELUSION
     Dosage: 100MG VARIABLE DOSE
     Dates: start: 20060701
  3. SOTALOL HYDROCHLORIDE [Concomitant]
  4. METOPROLOL TARTRATE [Concomitant]
  5. CALCIUM GLUCONATE [Concomitant]
  6. CRANBERRY TABLETS [Concomitant]
  7. ACTONEL [Concomitant]
  8. AMOXICILLIN [Concomitant]
     Indication: URINARY TRACT INFECTION
     Dosage: 250MG THREE TIMES PER DAY
     Dates: start: 20060802, end: 20060812

REACTIONS (6)
  - COORDINATION ABNORMAL [None]
  - DELUSION [None]
  - FALL [None]
  - HALLUCINATION [None]
  - MOBILITY DECREASED [None]
  - THINKING ABNORMAL [None]
